FAERS Safety Report 8294687-3 (Version None)
Quarter: 2012Q2

REPORT INFORMATION
  Report Type: 
  Country: None (occurrence: None)
  Receive Date: 20120418
  Receipt Date: 20120410
  Transmission Date: 20120825
  Serious: Yes (Other)
  Sender: FDA-Public Use
  Company Number: CH-CUBIST-2011S1000257

PATIENT
  Age: 63 Year
  Sex: Male
  Weight: 85 kg

DRUGS (5)
  1. DAPTOMYCIN [Suspect]
     Indication: BACTERAEMIA
     Route: 042
     Dates: start: 20110319, end: 20110323
  2. PIPERACILLIN SODIUM [Suspect]
     Indication: BACTERAEMIA
     Route: 065
     Dates: start: 20110319, end: 20110323
  3. NEXIUM [Concomitant]
     Route: 065
     Dates: end: 20110323
  4. DAPTOMYCIN [Suspect]
     Route: 042
     Dates: start: 20110319, end: 20110323
  5. VANCOMYCIN [Concomitant]
     Route: 065
     Dates: start: 20110311, end: 20110323

REACTIONS (4)
  - ACUTE HEPATIC FAILURE [None]
  - DIARRHOEA [None]
  - CARDIOVASCULAR INSUFFICIENCY [None]
  - INFECTION [None]
